FAERS Safety Report 7296257-2 (Version None)
Quarter: 2011Q1

REPORT INFORMATION
  Report Type: 
  Country: None (occurrence: None)
  Receive Date: 20110216
  Receipt Date: 20110207
  Transmission Date: 20110831
  Serious: Yes (Other)
  Sender: FDA-Public Use
  Company Number: FR-ASTRAZENECA-2011SE08369

PATIENT
  Age: 11051 Day
  Sex: Male

DRUGS (4)
  1. REMICADE [Suspect]
     Dosage: 5 MG/KG EVERY TWO MONTHS
     Route: 042
     Dates: start: 20100226
  2. PENTASA [Suspect]
     Route: 048
     Dates: start: 20100415
  3. LEVOTHYROX [Concomitant]
     Route: 048
     Dates: start: 20100801
  4. ENTOCORT EC [Suspect]
     Route: 048
     Dates: start: 20100226

REACTIONS (1)
  - PSORIASIS [None]
